FAERS Safety Report 17339533 (Version 1)
Quarter: 2020Q1

REPORT INFORMATION
  Report Type: Spontaneous
  Country: US (occurrence: US)
  Receive Date: 20200128
  Receipt Date: 20200128
  Transmission Date: 20200409
  Serious: Yes (Other)
  Sender: FDA-Public Use
  Company Number: None

PATIENT
  Age: 25 Year
  Sex: Female
  Weight: 81 kg

DRUGS (1)
  1. EMGALITY [Suspect]
     Active Substance: GALCANEZUMAB-GNLM
     Indication: MIGRAINE
     Dates: start: 20191105, end: 20200105

REACTIONS (10)
  - Suicidal ideation [None]
  - Irritability [None]
  - Weight increased [None]
  - Depression [None]
  - Constipation [None]
  - Dry skin [None]
  - Therapy cessation [None]
  - Anger [None]
  - Skin exfoliation [None]
  - Anxiety [None]

NARRATIVE: CASE EVENT DATE: 20200115
